FAERS Safety Report 5905182-8 (Version None)
Quarter: 2008Q3

REPORT INFORMATION
  Report Type: 
  Country: None (occurrence: None)
  Receive Date: 20080909
  Receipt Date: 20071026
  Transmission Date: 20090109
  Serious: Yes (Other)
  Sender: FDA-Public Use
  Company Number: 163-20785-07101602

PATIENT
  Age: 58 Year
  Sex: Female

DRUGS (5)
  1. THALOMID [Suspect]
     Indication: MULTIPLE MYELOMA
     Dosage: 50 MG, 1 IN 1 D, ORAL
     Route: 048
     Dates: start: 20040129, end: 20070201
  2. LORTAB [Concomitant]
  3. DIOVAN [Concomitant]
  4. PHENERGAN HCL [Concomitant]
  5. MEGACE ES (MEGESTROL ACETATE) [Concomitant]

REACTIONS (2)
  - BLOOD COUNT ABNORMAL [None]
  - CEREBROVASCULAR ACCIDENT [None]
